FAERS Safety Report 4957612-6 (Version None)
Quarter: 2006Q1

REPORT INFORMATION
  Report Type: 
  Country: None (occurrence: None)
  Receive Date: 20060324
  Receipt Date: 20060309
  Transmission Date: 20060701
  Serious: Yes (Death)
  Sender: FDA-Public Use
  Company Number: 2006S1002092

PATIENT
  Age: 72 Year
  Sex: Male

DRUGS (9)
  1. CLOZAPINE [Suspect]
     Indication: AGGRESSION
     Dosage: 200 MG; QD; ORAL
     Route: 048
     Dates: start: 20040401, end: 20060201
  2. CLOZAPINE [Suspect]
     Indication: DELUSIONAL DISORDER, UNSPECIFIED TYPE
     Dosage: 200 MG; QD; ORAL
     Route: 048
     Dates: start: 20040401, end: 20060201
  3. CLOZAPINE [Suspect]
     Indication: SCHIZOPHRENIA
     Dosage: 200 MG; QD; ORAL
     Route: 048
     Dates: start: 20040401, end: 20060201
  4. PRAZOSIN [Concomitant]
  5. HALOPERIDOL [Concomitant]
  6. CARBAMAZEPINE [Concomitant]
  7. BENZTROPINE MESYLATE [Concomitant]
  8. NIFEDIPINE [Concomitant]
  9. SIMVASTATIN [Concomitant]

REACTIONS (2)
  - ASPIRATION [None]
  - SUDDEN DEATH [None]
